FAERS Safety Report 4875505-X (Version None)
Quarter: 2006Q1

REPORT INFORMATION
  Report Type: 
  Country: None (occurrence: None)
  Receive Date: 20060109
  Receipt Date: 20051230
  Transmission Date: 20060701
  Serious: Yes (Other)
  Sender: FDA-Public Use
  Company Number: US-JNJFOC-20051205988

PATIENT
  Sex: Female
  Weight: 77.57 kg

DRUGS (5)
  1. REMICADE [Suspect]
     Indication: RHEUMATOID ARTHRITIS
     Route: 042
  2. RITUXAN [Concomitant]
  3. PREDNISONE [Concomitant]
  4. FOSAMAX [Concomitant]
     Indication: OSTEOPOROSIS
  5. ALEVE [Concomitant]
     Indication: PAIN

REACTIONS (2)
  - NON-HODGKIN'S LYMPHOMA [None]
  - RHEUMATOID ARTHRITIS [None]
